FAERS Safety Report 9537405 (Version 1)
Quarter: 2013Q3

REPORT INFORMATION
  Report Type: Spontaneous
  Country: DK (occurrence: FR)
  Receive Date: 20130919
  Receipt Date: 20130919
  Transmission Date: 20140515
  Serious: Yes (Disabling)
  Sender: FDA-Public Use
  Company Number: FR-FRI-1000048942

PATIENT
  Age: 88 Year
  Sex: Male

DRUGS (4)
  1. ESCITALOPRAM [Suspect]
     Indication: DEPRESSION
     Dosage: 10 MG
     Route: 048
     Dates: end: 20130610
  2. FUROSEMIDE [Suspect]
     Indication: HYPERTENSION
     Dosage: 1 DF
     Route: 048
     Dates: start: 2009, end: 20130610
  3. ALPRAZOLAM [Suspect]
     Dosage: 1 DF
     Route: 048
     Dates: end: 20130624
  4. FORADIL [Concomitant]

REACTIONS (6)
  - Ischaemic stroke [Recovering/Resolving]
  - Convulsion [Recovering/Resolving]
  - Hemiparesis [Recovered/Resolved]
  - Hemianopia homonymous [Recovered/Resolved]
  - Fall [Unknown]
  - Confusional state [Recovering/Resolving]
